FAERS Safety Report 4752706-2 (Version None)
Quarter: 2005Q3

REPORT INFORMATION
  Report Type: 
  Country: None (occurrence: None)
  Receive Date: 20050823
  Receipt Date: 20050815
  Transmission Date: 20060218
  Serious: Yes (Other)
  Sender: FDA-Public Use
  Company Number: US-2005-010662

PATIENT
  Age: 51 Year
  Sex: Female
  Weight: 87.1 kg

DRUGS (9)
  1. BETASERON [Suspect]
     Indication: RELAPSING-REMITTING MULTIPLE SCLEROSIS
     Dosage: 8 MIU, EVERY 2D, SUBCUTANEOUS
     Route: 058
     Dates: start: 20010409, end: 20050713
  2. NEURONTIN [Concomitant]
  3. BACLOFEN [Concomitant]
  4. WELLBUTRIN [Concomitant]
  5. ATIVAN [Concomitant]
  6. PROTONIX [Concomitant]
  7. PROVIGIL [Concomitant]
  8. IBUPROFEN [Concomitant]
  9. ANALGESICS [Concomitant]

REACTIONS (5)
  - CHRONIC MYELOID LEUKAEMIA [None]
  - HAEMATOCRIT DECREASED [None]
  - NUCLEATED RED CELLS [None]
  - RED BLOOD CELL COUNT DECREASED [None]
  - RED CELL DISTRIBUTION WIDTH INCREASED [None]
